FAERS Safety Report 7997430-8 (Version None)
Quarter: 2011Q4

REPORT INFORMATION
  Report Type: 
  Country: None (occurrence: None)
  Receive Date: 20111221
  Receipt Date: 20111215
  Transmission Date: 20120403
  Serious: Yes (Death)
  Sender: FDA-Public Use
  Company Number: US-CELGENEUS-163-21880-11091391

PATIENT
  Sex: Female

DRUGS (2)
  1. REVLIMID [Suspect]
     Indication: MULTIPLE MYELOMA
     Dosage: 10 MILLIGRAM
     Route: 048
     Dates: start: 20090401
  2. REVLIMID [Suspect]
     Dosage: 10 MILLIGRAM
     Route: 048
     Dates: start: 20110801

REACTIONS (6)
  - ANAEMIA [None]
  - FAILURE TO THRIVE [None]
  - PANCYTOPENIA [None]
  - PNEUMONIA [None]
  - MULTIPLE MYELOMA [None]
  - TREATMENT NONCOMPLIANCE [None]
